FAERS Safety Report 15209119 (Version 1)
Quarter: 2018Q4

REPORT INFORMATION
  Report Type: Spontaneous
  Country: FR (occurrence: FR)
  Receive Date: 20180727
  Receipt Date: 20180727
  Transmission Date: 20190204
  Serious: Yes (Other)
  Sender: FDA-Public Use
  Company Number: FR-TEVA-2018-FR-930371

PATIENT
  Age: 41 Year
  Sex: Female

DRUGS (4)
  1. CETIRIZINE (DICHLORHYDRATE DE) [Suspect]
     Active Substance: CETIRIZINE HYDROCHLORIDE
     Indication: PRODUCT USED FOR UNKNOWN INDICATION
     Dosage: 10 MILLIGRAM DAILY; 1 CP AU COUCHER
     Route: 048
     Dates: start: 20171103
  2. CYMBALTA [Suspect]
     Active Substance: DULOXETINE HYDROCHLORIDE
     Indication: PRODUCT USED FOR UNKNOWN INDICATION
     Dosage: 60 MILLIGRAM DAILY; 1 G?LULE PAR JOUR
     Route: 048
     Dates: start: 20171103
  3. TRAMADOL (CHLORHYDRATE DE): [Suspect]
     Active Substance: TRAMADOL HYDROCHLORIDE
     Indication: PRODUCT USED FOR UNKNOWN INDICATION
     Dosage: 300 MILLIGRAM DAILY; 1 CP MATIN, MIDI ET SOIR
     Route: 048
     Dates: start: 20171103
  4. RHINOCORT [Suspect]
     Active Substance: BUDESONIDE
     Indication: PRODUCT USED FOR UNKNOWN INDICATION
     Dosage: 60 MILLIGRAM DAILY; 1 G?LULE PAR JOUR
     Route: 048
     Dates: start: 20171103

REACTIONS (3)
  - Drug dependence [Not Recovered/Not Resolved]
  - Prescription form tampering [Not Recovered/Not Resolved]
  - Drug abuse [Not Recovered/Not Resolved]
